FAERS Safety Report 18660779 (Version 2)
Quarter: 2020Q4

REPORT INFORMATION
  Report Type: Spontaneous
  Country: ES (occurrence: ES)
  Receive Date: 20201224
  Receipt Date: 20201228
  Transmission Date: 20210114
  Serious: Yes (Other)
  Sender: FDA-Public Use
  Company Number: ES-ABBVIE-20K-144-3706771-00

PATIENT
  Age: 68 Year
  Sex: Male

DRUGS (2)
  1. AMIODARONE [Concomitant]
     Active Substance: AMIODARONE
     Indication: PRODUCT USED FOR UNKNOWN INDICATION
  2. IMBRUVICA [Suspect]
     Active Substance: IBRUTINIB
     Indication: MANTLE CELL LYMPHOMA
     Route: 048
     Dates: start: 20171213

REACTIONS (11)
  - Cardiorenal syndrome [Unknown]
  - Cardiac failure [Unknown]
  - Asthenia [Unknown]
  - Influenza [Unknown]
  - Therapeutic product effect incomplete [Unknown]
  - Haemorrhagic diathesis [Unknown]
  - Pleural effusion [Unknown]
  - Atrial fibrillation [Unknown]
  - Ecchymosis [Recovered/Resolved]
  - Haematoma [Unknown]
  - Diarrhoea [Unknown]

NARRATIVE: CASE EVENT DATE: 20180102
